FAERS Safety Report 19965913 (Version 2)
Quarter: 2021Q4

REPORT INFORMATION
  Report Type: Spontaneous
  Country: None (occurrence: IE)
  Receive Date: 20211019
  Receipt Date: 20211104
  Transmission Date: 20220303
  Serious: Yes (Other)
  Sender: FDA-Public Use
  Company Number: IE-ASCEND THERAPEUTICS US, LLC-2120712

PATIENT
  Age: 49 Year
  Sex: Female

DRUGS (4)
  1. ESTROGEL [Suspect]
     Active Substance: ESTRADIOL
     Indication: Hormone replacement therapy
     Route: 061
  2. ESTROGEL [Suspect]
     Active Substance: ESTRADIOL
  3. ESTRADIOL [Suspect]
     Active Substance: ESTRADIOL
     Route: 061
  4. ESTRADIOL [Suspect]
     Active Substance: ESTRADIOL
     Route: 061

REACTIONS (6)
  - Hyperhidrosis [Not Recovered/Not Resolved]
  - Rash pruritic [Recovered/Resolved]
  - Anxiety [Unknown]
  - Hot flush [Unknown]
  - Pruritus [Recovered/Resolved]
  - Suspected product quality issue [Unknown]

NARRATIVE: CASE EVENT DATE: 20210822
